FAERS Safety Report 7834420-X (Version None)
Quarter: 2011Q4

REPORT INFORMATION
  Report Type: 
  Country: None (occurrence: None)
  Receive Date: 20111024
  Receipt Date: 20111017
  Transmission Date: 20120403
  Serious: Yes (Other)
  Sender: FDA-Public Use
  Company Number: US-SANOFI-AVENTIS-2011SA068635

PATIENT
  Age: 64 Year
  Sex: Female

DRUGS (1)
  1. PLAVIX [Suspect]
     Route: 048
     Dates: start: 20040101

REACTIONS (6)
  - TRANSIENT ISCHAEMIC ATTACK [None]
  - PRODUCT QUALITY ISSUE [None]
  - CONTUSION [None]
  - ABDOMINAL PAIN UPPER [None]
  - FALL [None]
  - AMNESIA [None]
